FAERS Safety Report 10896360 (Version 2)
Quarter: 2015Q3

REPORT INFORMATION
  Report Type: Spontaneous
  Country: IT (occurrence: IT)
  Receive Date: 20150309
  Receipt Date: 20150914
  Transmission Date: 20151125
  Serious: Yes (Hospitalization, Other)
  Sender: FDA-Public Use
  Company Number: IT-ACCORD-029119

PATIENT
  Age: 57 Year
  Sex: Female
  Weight: 62 kg

DRUGS (1)
  1. DOCETAXEL ACCORD [Suspect]
     Active Substance: DOCETAXEL
     Indication: BREAST CANCER
     Dosage: RECEIVED 1 DF (STRENGTH: 80MG/4ML) AND 1 DF (STRENGTH: 20MG/ 1ML).?1ST ADMINISTRATION: 20-JAN-2015.
     Route: 042
     Dates: start: 20150120, end: 20150210

REACTIONS (4)
  - Gravitational oedema [Recovering/Resolving]
  - Dysaesthesia [Recovering/Resolving]
  - Pain in extremity [Recovering/Resolving]
  - Hyperaesthesia [Recovering/Resolving]

NARRATIVE: CASE EVENT DATE: 20150124
